FAERS Safety Report 4784339-6 (Version None)
Quarter: 2005Q3

REPORT INFORMATION
  Report Type: 
  Country: None (occurrence: None)
  Receive Date: 20050930
  Receipt Date: 20050922
  Transmission Date: 20060218
  Serious: Yes (Other)
  Sender: FDA-Public Use
  Company Number: PHBS2005NZ13971

PATIENT
  Age: 73 Year
  Sex: Male

DRUGS (4)
  1. ZASTEN [Suspect]
     Dosage: 1 MG/DAY
     Route: 048
  2. ALLOPURINOL [Concomitant]
     Route: 048
  3. PREDNISONE [Concomitant]
     Route: 048
  4. DICLOFENAC [Concomitant]
     Route: 048

REACTIONS (1)
  - JAUNDICE [None]
